FAERS Safety Report 18995119 (Version 5)
Quarter: 2021Q2

REPORT INFORMATION
  Report Type: Spontaneous
  Country: JP (occurrence: JP)
  Receive Date: 20210310
  Receipt Date: 20210416
  Transmission Date: 20210717
  Serious: Yes (Hospitalization, Other)
  Sender: FDA-Public Use
  Company Number: JP-JNJFOC-20210310562

PATIENT
  Age: 60 Year
  Sex: Male
  Weight: 75 kg

DRUGS (3)
  1. XEPLION [Suspect]
     Active Substance: PALIPERIDONE PALMITATE
     Dosage: RIGHT GLUTEAL MUSCLE
     Route: 030
     Dates: start: 20210316, end: 20210316
  2. XEPLION [Suspect]
     Active Substance: PALIPERIDONE PALMITATE
     Indication: SCHIZOPHRENIA
     Dosage: DOSE UNKNOWNBUTTOCK
     Route: 030
  3. XEPLION [Suspect]
     Active Substance: PALIPERIDONE PALMITATE
     Dosage: RIGHT GLUTEAL MUSCLE
     Route: 030
     Dates: start: 20210216, end: 20210216

REACTIONS (4)
  - Spinal compression fracture [Not Recovered/Not Resolved]
  - Abdominal pain [Recovering/Resolving]
  - Administration site calcification [Unknown]
  - Fall [Not Recovered/Not Resolved]

NARRATIVE: CASE EVENT DATE: 20210205
